FAERS Safety Report 6606484-2 (Version None)
Quarter: 2010Q1

REPORT INFORMATION
  Report Type: 
  Country: None (occurrence: None)
  Receive Date: 20100226
  Receipt Date: 20100215
  Transmission Date: 20100710
  Serious: Yes (Other)
  Sender: FDA-Public Use
  Company Number: PHEH2008US02660

PATIENT
  Sex: Female

DRUGS (22)
  1. AREDIA [Suspect]
     Dosage: UNK
     Dates: start: 20010401
  2. ZOMETA [Suspect]
  3. COUMADIN [Suspect]
  4. GLIPIZIDE [Concomitant]
  5. FEMARA [Concomitant]
  6. SIMVASTATIN [Concomitant]
  7. RESTORIL [Concomitant]
  8. DOCUSATE [Concomitant]
  9. SENOKOT                                 /UNK/ [Concomitant]
  10. FENTANYL [Concomitant]
  11. ZYRTEC [Concomitant]
  12. NARCAN [Concomitant]
  13. AMBIEN [Concomitant]
  14. CARDIZEM [Concomitant]
  15. CORDARONE [Concomitant]
  16. LOVENOX [Concomitant]
  17. FLAGYL [Concomitant]
  18. CIPROFLOXACIN [Concomitant]
  19. LIPOSYN [Concomitant]
  20. DILAUDID [Concomitant]
  21. MYCELEX [Concomitant]
  22. INAPSINE [Concomitant]

REACTIONS (60)
  - ADRENAL MASS [None]
  - ANAEMIA [None]
  - ANHEDONIA [None]
  - ANXIETY [None]
  - ARTERIOSCLEROSIS [None]
  - ARTHRALGIA [None]
  - ASTHENIA [None]
  - ATELECTASIS [None]
  - BACTERIAL DISEASE CARRIER [None]
  - BONE DEVELOPMENT ABNORMAL [None]
  - CARDIAC FAILURE CONGESTIVE [None]
  - CARDIAC PACEMAKER INSERTION [None]
  - CARDIOMEGALY [None]
  - CHEST PAIN [None]
  - COLOSTOMY [None]
  - CONSTIPATION [None]
  - CONTUSION [None]
  - CORONARY ARTERY DISEASE [None]
  - DEEP VEIN THROMBOSIS [None]
  - DISABILITY [None]
  - DIVERTICULITIS [None]
  - ENTEROCUTANEOUS FISTULA [None]
  - EXOSTOSIS [None]
  - FEMUR FRACTURE [None]
  - GASTROOESOPHAGEAL REFLUX DISEASE [None]
  - HAEMORRHAGE [None]
  - HIATUS HERNIA [None]
  - HYPERLIPIDAEMIA [None]
  - HYPERTENSION [None]
  - HYPOKALAEMIA [None]
  - IMPAIRED HEALING [None]
  - INJURY [None]
  - INSOMNIA [None]
  - INTESTINAL FUNCTIONAL DISORDER [None]
  - INTESTINAL RESECTION [None]
  - JAW DISORDER [None]
  - LUNG INFILTRATION [None]
  - MALIGNANT NEOPLASM PROGRESSION [None]
  - MASTECTOMY [None]
  - METASTASES TO BONE [None]
  - MITRAL VALVE INCOMPETENCE [None]
  - OSTEOARTHRITIS [None]
  - OSTEONECROSIS [None]
  - PAIN [None]
  - PATHOLOGICAL FRACTURE [None]
  - PLEURAL EFFUSION [None]
  - PULMONARY CONGESTION [None]
  - PULMONARY HYPERTENSION [None]
  - PULMONARY OEDEMA [None]
  - PYREXIA [None]
  - RASH PRURITIC [None]
  - RENAL FAILURE [None]
  - SCIATICA [None]
  - SEPSIS [None]
  - SIGMOIDECTOMY [None]
  - SURGERY [None]
  - TOOTH LOSS [None]
  - TYPE 2 DIABETES MELLITUS [None]
  - VENTRICULAR FIBRILLATION [None]
  - WOUND INFECTION [None]
